FAERS Safety Report 6278209-4 (Version None)
Quarter: 2009Q3

REPORT INFORMATION
  Report Type: 
  Country: None (occurrence: None)
  Receive Date: 20090722
  Receipt Date: 20090710
  Transmission Date: 20100115
  Serious: Yes (Hospitalization, Disabling, Other)
  Sender: FDA-Public Use
  Company Number: PT-PFIZER INC-2009237404

PATIENT
  Age: 40 Year

DRUGS (2)
  1. CHAMPIX [Suspect]
     Dosage: 0.5 MG, 1X/DAY
     Dates: start: 20090501
  2. CHAMPIX [Suspect]
     Dosage: 0.5 MG, 2X/DAY

REACTIONS (10)
  - ABNORMAL BEHAVIOUR [None]
  - AMNESIA [None]
  - ANXIETY [None]
  - BIPOLAR DISORDER [None]
  - DELIRIUM [None]
  - DEPRESSION [None]
  - HALLUCINATION, VISUAL [None]
  - HISTRIONIC PERSONALITY DISORDER [None]
  - REACTIVE PSYCHOSIS [None]
  - TRANCE [None]
